FAERS Safety Report 8924839 (Version 7)
Quarter: 2020Q4

REPORT INFORMATION
  Report Type: Spontaneous
  Country: US (occurrence: US)
  Receive Date: 20121126
  Receipt Date: 20201231
  Transmission Date: 20210114
  Serious: Yes (Hospitalization, Disabling, Other)
  Sender: FDA-Public Use
  Company Number: US-009507513-1211USA008068

PATIENT
  Sex: Female

DRUGS (14)
  1. FOSAMAX [Suspect]
     Active Substance: ALENDRONATE SODIUM
     Indication: OSTEOPOROSIS
  2. VITAMIN D (UNSPECIFIED) [Concomitant]
     Active Substance: VITAMIN D NOS
     Dosage: 600 MG, QD
     Route: 048
     Dates: start: 1988
  3. FOSAMAX [Suspect]
     Active Substance: ALENDRONATE SODIUM
     Indication: OSTEOPOROSIS
     Dosage: 10 MG, UNK
     Route: 048
     Dates: start: 1995, end: 2002
  4. OSTEO-BI-FLEX [Concomitant]
     Dosage: 2 TABLETS
     Route: 048
     Dates: start: 1988
  5. OMEGA-3 MARINE TRIGLYCERIDES [Concomitant]
     Active Substance: OMEGA-3-ACID ETHYL ESTERS
     Dosage: 1000 MG, UNK
     Route: 048
     Dates: start: 1988
  6. FOSAMAX [Suspect]
     Active Substance: ALENDRONATE SODIUM
     Indication: OSTEOPENIA
     Dosage: 70 MG, UNK
     Route: 048
     Dates: start: 2002, end: 2011
  7. BONIVA [Suspect]
     Active Substance: IBANDRONATE SODIUM
     Indication: OSTEOPOROSIS PROPHYLAXIS
  8. BONIVA [Suspect]
     Active Substance: IBANDRONATE SODIUM
     Indication: OSTEOPENIA
     Dosage: UNK
     Route: 048
     Dates: start: 2004, end: 2011
  9. FOSAMAX [Suspect]
     Active Substance: ALENDRONATE SODIUM
     Indication: OSTEOPENIA
     Dosage: AS PRESCRIBED AND IN A FORESEEABLE MANNER
     Route: 048
     Dates: start: 2004, end: 2011
  10. VITAMINS (UNSPECIFIED) [Concomitant]
     Active Substance: VITAMINS
     Dosage: UNK
  11. ASCORBIC ACID. [Concomitant]
     Active Substance: ASCORBIC ACID
     Dosage: 1000 MG, UNK
     Route: 048
     Dates: start: 1988
  12. CENTRUM SILVER [Concomitant]
     Active Substance: MINERALS\VITAMINS
     Dosage: UNK, QD
     Route: 048
  13. FOSAMAX [Suspect]
     Active Substance: ALENDRONATE SODIUM
     Indication: OSTEOPOROSIS PROPHYLAXIS
     Dosage: UNK
  14. CALCIUM (UNSPECIFIED) [Concomitant]
     Active Substance: CALCIUM
     Dosage: 1000 MG, UNK
     Route: 048
     Dates: start: 1988

REACTIONS (33)
  - Open reduction of fracture [Unknown]
  - Femur fracture [Not Recovered/Not Resolved]
  - Hypertension [Unknown]
  - Femur fracture [Not Recovered/Not Resolved]
  - Open reduction of fracture [Unknown]
  - Breast cancer [Unknown]
  - Back pain [Not Recovered/Not Resolved]
  - Stress fracture [Unknown]
  - Low turnover osteopathy [Unknown]
  - Blood loss anaemia [Unknown]
  - Pain in extremity [Unknown]
  - Rheumatoid arthritis [Unknown]
  - Hypothyroidism [Unknown]
  - Anxiety [Unknown]
  - Vitamin D decreased [Unknown]
  - Bronchial hyperreactivity [Unknown]
  - Gastrooesophageal reflux disease [Unknown]
  - Depression [Unknown]
  - Arthralgia [Not Recovered/Not Resolved]
  - Malabsorption [Unknown]
  - Arthritis [Unknown]
  - Incorrect product administration duration [Unknown]
  - Fracture [Not Recovered/Not Resolved]
  - Fall [Unknown]
  - Vitamin D deficiency [Unknown]
  - Joint effusion [Unknown]
  - Osteoarthritis [Unknown]
  - Somnolence [Unknown]
  - Osteoporosis [Unknown]
  - Femur fracture [Unknown]
  - Tooth extraction [Unknown]
  - Asthma [Unknown]
  - Depression [Unknown]

NARRATIVE: CASE EVENT DATE: 2003
